FAERS Safety Report 16978097 (Version 1)
Quarter: 2019Q4

REPORT INFORMATION
  Report Type: Spontaneous
  Country: ZA (occurrence: ZA)
  Receive Date: 20191031
  Receipt Date: 20191031
  Transmission Date: 20200122
  Serious: Yes (Other)
  Sender: FDA-Public Use
  Company Number: ZA-AMGEN-ZAFSP2019179433

PATIENT
  Age: 49 Year
  Sex: Female
  Weight: 120 kg

DRUGS (10)
  1. ARAVA [Concomitant]
     Active Substance: LEFLUNOMIDE
     Dosage: 20 MG, DAILY
     Dates: start: 20050425, end: 20061106
  2. ENBREL [Suspect]
     Active Substance: ETANERCEPT
     Dosage: 50 MG, WEEKLY
     Route: 065
     Dates: start: 20170609
  3. REVELLEX [Concomitant]
     Active Substance: INFLIXIMAB
     Dosage: 500 MG, 6W
     Dates: start: 20041106, end: 20061116
  4. MABTHERA [Concomitant]
     Active Substance: RITUXIMAB
     Dosage: 1000 MGX2
     Dates: start: 20100706, end: 20120224
  5. SALAZOPYRIN [Suspect]
     Active Substance: SULFASALAZINE
     Indication: PRODUCT USED FOR UNKNOWN INDICATION
     Dosage: 2 G, DAILY
     Route: 065
     Dates: start: 20040829
  6. PREDNISONE. [Suspect]
     Active Substance: PREDNISONE
     Indication: PRODUCT USED FOR UNKNOWN INDICATION
     Dosage: 10-15MG, DAILY
     Route: 065
     Dates: start: 20051129
  7. CHLOROQUINE. [Concomitant]
     Active Substance: CHLOROQUINE
     Dosage: 200 MG, DAILY
     Dates: start: 20040829, end: 20050425
  8. ACTEMRA [Concomitant]
     Active Substance: TOCILIZUMAB
     Dosage: 800 MG, 4W
     Dates: start: 20120224, end: 201506
  9. METHOTREXATE. [Suspect]
     Active Substance: METHOTREXATE
     Indication: PRODUCT USED FOR UNKNOWN INDICATION
     Dosage: 25 MG, WEEKLY
     Route: 058
     Dates: start: 20040829
  10. ENBREL [Suspect]
     Active Substance: ETANERCEPT
     Indication: PRODUCT USED FOR UNKNOWN INDICATION
     Dosage: 50 MG, WEEKLY
     Route: 065
     Dates: start: 20061116, end: 20100706

REACTIONS (5)
  - Urinary tract infection [Recovered/Resolved]
  - Depression [Recovered/Resolved]
  - Ankle fracture [Unknown]
  - Lower respiratory tract infection [Recovered/Resolved]
  - Rheumatoid arthritis [Recovered/Resolved]

NARRATIVE: CASE EVENT DATE: 201906
